FAERS Safety Report 11654687 (Version 9)
Quarter: 2017Q3

REPORT INFORMATION
  Report Type: Spontaneous
  Country: US (occurrence: US)
  Receive Date: 20151023
  Receipt Date: 20170901
  Transmission Date: 20171127
  Serious: Yes (Other)
  Sender: FDA-Public Use
  Company Number: US-PFIZER INC-2015341869

PATIENT
  Age: 54 Year
  Sex: Female

DRUGS (4)
  1. SUTENT [Suspect]
     Active Substance: SUNITINIB MALATE
     Indication: RENAL CELL CARCINOMA STAGE IV
     Dosage: 50 MG (1 CAPSULE), CYCLIC (EVERY DAY FOR 4 WEEKS ON, 2 WEEKS OFF)
     Route: 048
     Dates: start: 2014, end: 201501
  2. SUTENT [Suspect]
     Active Substance: SUNITINIB MALATE
     Dosage: 50 MG (1 CAPSULE), CYCLIC (EVERY DAY FOR 2 WEEKS ON, THEN 1 WEEK OFF)
     Route: 048
     Dates: start: 201501, end: 201602
  3. SUTENT [Suspect]
     Active Substance: SUNITINIB MALATE
     Dosage: 50 MG, CYCLIC (2 WEEKS ON, 1 WEEK OFF)
     Route: 048
     Dates: start: 20161222
  4. SUTENT [Suspect]
     Active Substance: SUNITINIB MALATE
     Dosage: 50 MG, CYCLIC (TAKE 1 CAPSULE (50 MG) BY MOUTH EVERY DAY FOR 2 WEEKS, THEN 1 WEEK OFF)
     Route: 048
     Dates: start: 2014

REACTIONS (11)
  - Oedema peripheral [Unknown]
  - Pain in extremity [Recovered/Resolved]
  - Palmar-plantar erythrodysaesthesia syndrome [Unknown]
  - Asthenia [Unknown]
  - Suicidal ideation [Recovered/Resolved]
  - Nausea [Unknown]
  - Fatigue [Unknown]
  - Hyperaesthesia [Unknown]
  - Pain [Unknown]
  - Burning sensation [Not Recovered/Not Resolved]
  - Hyperkeratosis [Recovered/Resolved]
